FAERS Safety Report 9765791 (Version 1)
Quarter: 2013Q4

REPORT INFORMATION
  Report Type: Spontaneous
  Country: US (occurrence: US)
  Receive Date: 20131217
  Receipt Date: 20131217
  Transmission Date: 20140711
  Serious: No
  Sender: FDA-Public Use
  Company Number: US-GLAXOSMITHKLINE-A1011715A

PATIENT
  Age: 82 Year
  Sex: Male
  Weight: 75 kg

DRUGS (9)
  1. VOTRIENT [Suspect]
     Indication: RENAL CANCER
     Dosage: 800MG PER DAY
     Route: 048
     Dates: start: 201301
  2. VITAMIN D [Concomitant]
  3. BABY ASPIRIN [Concomitant]
  4. SIMVASTATIN [Concomitant]
  5. DOXAZOSIN [Concomitant]
  6. FLONASE [Concomitant]
  7. GLUCOSAMINE + CHONDROITIN [Concomitant]
  8. MULTIVITAMINS [Concomitant]
  9. VIAGRA [Concomitant]

REACTIONS (8)
  - Change of bowel habit [Recovered/Resolved]
  - Faeces soft [Recovered/Resolved]
  - Hepatotoxicity [Recovered/Resolved]
  - Hepatic function abnormal [Recovered/Resolved]
  - Aspartate aminotransferase increased [Recovering/Resolving]
  - Alanine aminotransferase increased [Recovering/Resolving]
  - Blood bilirubin increased [Recovered/Resolved]
  - Laboratory test abnormal [Unknown]
